FAERS Safety Report 12816381 (Version 1)
Quarter: 2016Q4

REPORT INFORMATION
  Report Type: Spontaneous
  Country: BR (occurrence: BR)
  Receive Date: 20161006
  Receipt Date: 20161006
  Transmission Date: 20170207
  Serious: No
  Sender: FDA-Public Use
  Company Number: BR-NOVEN PHARMACEUTICALS, INC.-BR2016001644

PATIENT

DRUGS (1)
  1. ESTRADIOL/NORETHISTERONE ACETATE [Suspect]
     Active Substance: ESTRADIOL\NORETHINDRONE ACETATE
     Indication: HORMONE REPLACEMENT THERAPY
     Dosage: UNK, 2/WK
     Route: 062
     Dates: start: 2014, end: 20160616

REACTIONS (7)
  - Application site pain [Recovering/Resolving]
  - Breast calcifications [Recovered/Resolved]
  - Skin exfoliation [Unknown]
  - Application site pruritus [Recovering/Resolving]
  - Swelling [Unknown]
  - Hypersensitivity [Unknown]
  - Application site erythema [Recovering/Resolving]

NARRATIVE: CASE EVENT DATE: 2014
